FAERS Safety Report 14368835 (Version 1)
Quarter: 2018Q1

REPORT INFORMATION
  Report Type: Spontaneous
  Country: US (occurrence: US)
  Receive Date: 20180109
  Receipt Date: 20180109
  Transmission Date: 20180509
  Serious: No
  Sender: FDA-Public Use
  Company Number: US-PFIZER INC-2018004557

PATIENT
  Age: 62 Year
  Sex: Male

DRUGS (1)
  1. EPLERENONE. [Suspect]
     Active Substance: EPLERENONE
     Indication: BLOOD PRESSURE ABNORMAL
     Dosage: UNK

REACTIONS (1)
  - Drug ineffective [Unknown]
